FAERS Safety Report 7440163-7 (Version None)
Quarter: 2011Q2

REPORT INFORMATION
  Report Type: 
  Country: None (occurrence: None)
  Receive Date: 20110427
  Receipt Date: 20110418
  Transmission Date: 20111010
  Serious: No
  Sender: FDA-Public Use
  Company Number: CA-JNJFOC-20110405126

PATIENT
  Age: 71 Year
  Sex: Female

DRUGS (3)
  1. REGULAR STRENGTH SINUTAB SINUS AND ALLERGY [Suspect]
     Indication: SINUS DISORDER
     Dosage: AS NEEDED
     Route: 048
  2. ELTROXIN [Concomitant]
     Indication: HYPOTHYROIDISM
     Route: 065
  3. REGULAR STRENGTH SINUTAB SINUS AND ALLERGY [Suspect]
     Route: 048

REACTIONS (2)
  - HEAD DISCOMFORT [None]
  - SOMNOLENCE [None]
